FAERS Safety Report 4497798-3 (Version None)
Quarter: 2004Q4

REPORT INFORMATION
  Report Type: 
  Country: None (occurrence: None)
  Receive Date: 20041104
  Receipt Date: 20041019
  Transmission Date: 20050328
  Serious: Yes (Other)
  Sender: FDA-Public Use
  Company Number: K200401296

PATIENT
  Age: 61 Year
  Sex: Male
  Weight: 62.9 kg

DRUGS (11)
  1. SEPTRA            (TRIMETHOPRIM, SULFAMETHAXOLE) [Suspect]
     Indication: INFECTION PROPHYLAXIS
     Dosage: 1 TABLET, QD, ORAL
     Route: 048
     Dates: start: 20021225
  2. EIPVIR -HBV (LAMIVUDINE) [Suspect]
     Indication: HEPATITIS B
     Dosage: SEE IMAGE, ORAL
     Route: 048
     Dates: start: 20040724, end: 20040830
  3. EIPVIR -HBV (LAMIVUDINE) [Suspect]
     Indication: HEPATITIS B
     Dosage: SEE IMAGE, ORAL
     Route: 048
     Dates: start: 20040831
  4. NORVASC [Concomitant]
  5. FAMOTIDINE [Concomitant]
  6. ALFAROL (ALFACALCIDOL) [Concomitant]
  7. BASEN (VOGLIBOSE) [Concomitant]
  8. PREDNISOLONE [Concomitant]
  9. SLOW-K [Concomitant]
  10. URSO [Concomitant]
  11. PROHEPARUM [Concomitant]

REACTIONS (4)
  - ANAEMIA [None]
  - DRUG LEVEL INCREASED [None]
  - HEPATITIS B [None]
  - RENAL TUBULAR DISORDER [None]
